FAERS Safety Report 5210298-8 (Version None)
Quarter: 2007Q1

REPORT INFORMATION
  Report Type: 
  Country: None (occurrence: None)
  Receive Date: 20070111
  Receipt Date: 20061229
  Transmission Date: 20070707
  Serious: Yes (Hospitalization)
  Sender: FDA-Public Use
  Company Number: HQWYE146202JAN07

PATIENT
  Age: 88 Year
  Sex: Male

DRUGS (11)
  1. AMIODARONE HCL [Suspect]
     Dosage: 200 MG 1X PER 1 DAY ORAL
     Route: 048
     Dates: start: 20020101, end: 20061129
  2. BENDROFLUMETHIAZIDE (BENDROFLUMETHIAZIDE) [Concomitant]
  3. DOCUSATE SODIUM (DOCUSATE SODIUM) [Concomitant]
  4. LACTULOSE [Concomitant]
  5. LACTULOSE [Concomitant]
  6. MORPHINE SULFATE [Concomitant]
  7. MORPHINE SULFATE [Concomitant]
  8. OMEPRAZOLE [Concomitant]
  9. PERINDOPRIL ERBUMINE [Concomitant]
  10. SENNA (SENNA) [Concomitant]
  11. VERAPAMIL [Concomitant]

REACTIONS (5)
  - ABDOMINAL PAIN [None]
  - CHEST PAIN [None]
  - CONSTIPATION [None]
  - HYPERTHYROIDISM [None]
  - MALAISE [None]
